FAERS Safety Report 5159826-1 (Version None)
Quarter: 2006Q4

REPORT INFORMATION
  Report Type: 
  Country: None (occurrence: None)
  Receive Date: 20061129
  Receipt Date: 20060124
  Transmission Date: 20070319
  Serious: No
  Sender: FDA-Public Use
  Company Number: US-GLAXOSMITHKLINE-A0590753A

PATIENT
  Age: 30 Year
  Sex: Female

DRUGS (1)
  1. WELLBUTRIN SR [Suspect]
     Indication: DEPRESSION
     Dosage: 150MG TWICE PER DAY
     Route: 048

REACTIONS (6)
  - ANXIETY [None]
  - HEART RATE INCREASED [None]
  - MUSCLE SPASMS [None]
  - NERVOUSNESS [None]
  - PANIC ATTACK [None]
  - TREMOR [None]
